FAERS Safety Report 17965041 (Version 1)
Quarter: 2020Q2

REPORT INFORMATION
  Report Type: Report from Study
  Country: HN (occurrence: HN)
  Receive Date: 20200630
  Receipt Date: 20200630
  Transmission Date: 20200714
  Serious: Yes (Other)
  Sender: FDA-Public Use
  Company Number: NVSC2020HN183791

PATIENT
  Age: 78 Year
  Sex: Female
  Weight: 66.68 kg

DRUGS (1)
  1. VYMADA [Suspect]
     Active Substance: SACUBITRIL\VALSARTAN
     Indication: PRODUCT USED FOR UNKNOWN INDICATION
     Dosage: 100 MG, UNKNOWN (STARTED 5 MONTHS AGO)
     Route: 065

REACTIONS (2)
  - Glucose tolerance impaired [Unknown]
  - Product dose omission [Unknown]
